FAERS Safety Report 25191556 (Version 1)
Quarter: 2025Q2

REPORT INFORMATION
  Report Type: Spontaneous
  Country: US (occurrence: None)
  Receive Date: 20250411
  Receipt Date: 20250411
  Transmission Date: 20250717
  Serious: No
  Sender: FDA-CTU
  Company Number: None

PATIENT
  Age: 59 Year

DRUGS (1)
  1. XDEMVY [Suspect]
     Active Substance: LOTILANER
     Route: 047
     Dates: start: 20250116

REACTIONS (3)
  - Staphylococcal infection [None]
  - Haematological infection [None]
  - Vascular device infection [None]

NARRATIVE: CASE EVENT DATE: 20250123
